FAERS Safety Report 19184684 (Version 5)
Quarter: 2022Q2

REPORT INFORMATION
  Report Type: Report from Study
  Country: FR (occurrence: FR)
  Receive Date: 20210427
  Receipt Date: 20220621
  Transmission Date: 20220720
  Serious: Yes (Other)
  Sender: FDA-Public Use
  Company Number: FR-GLAXOSMITHKLINE-FR2021EME080074

PATIENT

DRUGS (5)
  1. DOSTARLIMAB [Suspect]
     Active Substance: DOSTARLIMAB
     Indication: Endometrial cancer
     Dosage: 500 MG, QD
     Route: 042
     Dates: start: 20210211, end: 20210211
  2. DOSTARLIMAB [Suspect]
     Active Substance: DOSTARLIMAB
     Dosage: 500 MG, QD
     Route: 042
     Dates: start: 20210318, end: 20210318
  3. DOSTARLIMAB [Suspect]
     Active Substance: DOSTARLIMAB
     Dosage: 500 MG, QD
     Route: 042
     Dates: start: 20210505, end: 20210505
  4. DOSTARLIMAB [Suspect]
     Active Substance: DOSTARLIMAB
     Dosage: 500 MG, QD
     Route: 042
     Dates: start: 20210729, end: 20210729
  5. FENTANYL [Suspect]
     Active Substance: FENTANYL
     Indication: Product used for unknown indication
     Dosage: UNK (50)
     Dates: start: 20210211

REACTIONS (6)
  - Toxic skin eruption [Recovering/Resolving]
  - Urticaria [Recovering/Resolving]
  - Drug eruption [Recovering/Resolving]
  - Drug eruption [Not Recovered/Not Resolved]
  - Urticaria [Not Recovered/Not Resolved]
  - Rash morbilliform [Unknown]

NARRATIVE: CASE EVENT DATE: 20210304
